FAERS Safety Report 4822624-X (Version None)
Quarter: 2005Q4

REPORT INFORMATION
  Report Type: 
  Country: None (occurrence: None)
  Receive Date: 20051104
  Receipt Date: 20051028
  Transmission Date: 20060501
  Serious: No
  Sender: FDA-Public Use
  Company Number: 05H-163-0303400-00

PATIENT

DRUGS (1)
  1. HYDROMORPHONE HCL [Suspect]
     Dates: start: 20051027

REACTIONS (1)
  - THROAT TIGHTNESS [None]
